FAERS Safety Report 22814063 (Version 3)
Quarter: 2024Q1

REPORT INFORMATION
  Report Type: Spontaneous
  Country: RO (occurrence: RO)
  Receive Date: 20230811
  Receipt Date: 20240118
  Transmission Date: 20240410
  Serious: Yes (Other)
  Sender: FDA-Public Use
  Company Number: RO-Accord-371599

PATIENT
  Age: 68 Year
  Sex: Male

DRUGS (3)
  1. ZOLEDRONIC ACID [Suspect]
     Active Substance: ZOLEDRONIC ACID
     Indication: Metastases to bone
     Route: 042
  2. SUNITINIB [Suspect]
     Active Substance: SUNITINIB
     Indication: Renal cell carcinoma
     Dosage: 37.5 MG ONCE DAILY FOR FOUR CONSECUTIVE WEEKS OF THERAPY FOLLOWED BY 2 WEEKS OF DISCONTINUATION
     Route: 048
  3. SUNITINIB [Suspect]
     Active Substance: SUNITINIB
     Indication: Metastases to bone
     Dosage: 37.5 MG ONCE DAILY FOR FOUR CONSECUTIVE WEEKS OF THERAPY FOLLOWED BY 2 WEEKS OF DISCONTINUATION
     Route: 048

REACTIONS (3)
  - Jaw fistula [Unknown]
  - Actinomycosis [Unknown]
  - Osteonecrosis of jaw [Recovering/Resolving]
